FAERS Safety Report 12758514 (Version 1)
Quarter: 2016Q3

REPORT INFORMATION
  Report Type: Spontaneous
  Country: US (occurrence: US)
  Receive Date: 20160917
  Receipt Date: 20160917
  Transmission Date: 20161109
  Serious: No
  Sender: FDA-Public Use
  Company Number: None

PATIENT
  Age: 41 Year
  Sex: Male
  Weight: 96.75 kg

DRUGS (9)
  1. CLONIDINE. [Concomitant]
     Active Substance: CLONIDINE
  2. CITALOPRAM [Concomitant]
     Active Substance: CITALOPRAM HYDROBROMIDE
  3. HYOSCYAMINE. [Suspect]
     Active Substance: HYOSCYAMINE
     Indication: ABDOMINAL PAIN
     Route: 060
     Dates: start: 20160715, end: 20160917
  4. PROBIOTICS [Concomitant]
     Active Substance: PROBIOTICS NOS
  5. GABAPENTIN. [Concomitant]
     Active Substance: GABAPENTIN
  6. OXYCONTIN [Concomitant]
     Active Substance: OXYCODONE HYDROCHLORIDE
  7. IB GUARD [Concomitant]
  8. ZOFRAN [Concomitant]
     Active Substance: ONDANSETRON HYDROCHLORIDE
  9. GAS-X [Concomitant]
     Active Substance: DIMETHICONE

REACTIONS (4)
  - Vision blurred [None]
  - Balance disorder [None]
  - Dysarthria [None]
  - Heart rate increased [None]

NARRATIVE: CASE EVENT DATE: 20160827
